FAERS Safety Report 21166532 (Version 1)
Quarter: 2022Q3

REPORT INFORMATION
  Report Type: Report from Study
  Country: US (occurrence: US)
  Receive Date: 20220803
  Receipt Date: 20220803
  Transmission Date: 20221026
  Serious: Yes (Hospitalization)
  Sender: FDA-Public Use
  Company Number: US-ABBVIE-22K-163-4489995-00

PATIENT
  Sex: Female

DRUGS (1)
  1. SKYRIZI [Suspect]
     Active Substance: RISANKIZUMAB-RZAA
     Indication: Psoriasis
     Route: 058

REACTIONS (5)
  - Pelvic inflammatory disease [Recovered/Resolved]
  - Ovarian cyst ruptured [Unknown]
  - Sepsis [Unknown]
  - Menstruation delayed [Not Recovered/Not Resolved]
  - Psoriasis [Not Recovered/Not Resolved]
